FAERS Safety Report 8789095 (Version 1)
Quarter: 2012Q4

REPORT INFORMATION
  Report Type: 
  Country: US (occurrence: US)
  Receive Date: 20120917
  Receipt Date: 20120917
  Transmission Date: 20130627
  Serious: No
  Sender: FDA-Public Use
  Company Number: US-009507513-1208USA000086

PATIENT

DRUGS (3)
  1. VICTRELIS [Suspect]
     Indication: HEPATITIS C
     Dosage: 800 mg, tid
     Route: 048
     Dates: start: 20120726
  2. PEGINTRON [Suspect]
     Dosage: UNK
  3. REBETOL [Suspect]
     Dosage: UNK

REACTIONS (1)
  - Pruritus [Not Recovered/Not Resolved]
